FAERS Safety Report 9300836 (Version 1)
Quarter: 2013Q2

REPORT INFORMATION
  Report Type: Spontaneous
  Country: US (occurrence: US)
  Receive Date: 20130521
  Receipt Date: 20130521
  Transmission Date: 20140414
  Serious: Yes (Other)
  Sender: FDA-Public Use
  Company Number: US-JNJFOC-20130505230

PATIENT
  Age: 19 Year
  Sex: Female
  Weight: 49.9 kg

DRUGS (3)
  1. NEOSPORIN ORIGINAL OINTMENT UNSPECIFIED [Suspect]
     Indication: BLISTER
     Dosage: NICKEL SIZE
     Route: 061
     Dates: start: 20110830, end: 20110830
  2. CLARINEX [Concomitant]
     Indication: SEASONAL ALLERGY
     Dosage: MANY YEARS
     Route: 065
  3. LOESTRIN [Concomitant]
     Indication: CONTRACEPTION
     Route: 065

REACTIONS (3)
  - Anaphylactic reaction [Recovered/Resolved]
  - Expired drug administered [Unknown]
  - Off label use [Unknown]
